FAERS Safety Report 5064308-1 (Version None)
Quarter: 2006Q3

REPORT INFORMATION
  Report Type: 
  Country: None (occurrence: None)
  Receive Date: 20060728
  Receipt Date: 20060718
  Transmission Date: 20061208
  Serious: Yes (Death)
  Sender: FDA-Public Use
  Company Number: PHBS2006AT11135

PATIENT
  Age: 61 Year
  Sex: Male

DRUGS (9)
  1. CARBAMAZEPINE [Suspect]
     Route: 065
  2. MILNACIPRAN [Suspect]
  3. MIANSERIN [Suspect]
  4. QUETIAPINE FUMARATE [Suspect]
  5. LORAZEPAM [Suspect]
  6. TRAMADOL HCL [Suspect]
  7. DOXAZOSIN [Suspect]
  8. ALENDRONATE SODIUM [Suspect]
  9. PANTOPRAZOLE SODIUM [Suspect]
     Route: 065

REACTIONS (1)
  - DEATH [None]
